FAERS Safety Report 25379068 (Version 1)
Quarter: 2025Q2

REPORT INFORMATION
  Report Type: Spontaneous
  Country: CH (occurrence: CH)
  Receive Date: 20250530
  Receipt Date: 20250530
  Transmission Date: 20250717
  Serious: Yes (Other)
  Sender: UCB
  Company Number: None

PATIENT
  Age: 14 Year
  Sex: Male
  Weight: 43 kg

DRUGS (10)
  1. FINTEPLA [Suspect]
     Active Substance: FENFLURAMINE
     Indication: Lennox-Gastaut syndrome
     Dosage: 10 MILLIGRAM, 2X/DAY (BID)
     Dates: start: 20241108
  2. FINTEPLA [Suspect]
     Active Substance: FENFLURAMINE
     Dosage: 13 MILLIGRAM, 2X/DAY (BID)
     Route: 048
     Dates: start: 20241026, end: 20241107
  3. FINTEPLA [Suspect]
     Active Substance: FENFLURAMINE
     Dosage: 10 MILLIGRAM, 2X/DAY (BID)
     Dates: start: 20241019, end: 20241025
  4. FINTEPLA [Suspect]
     Active Substance: FENFLURAMINE
     Dosage: 8 MILLIGRAM, 2X/DAY (BID)
     Dates: start: 20241012, end: 20241018
  5. FINTEPLA [Suspect]
     Active Substance: FENFLURAMINE
     Dosage: 4 MILLIGRAM, 2X/DAY (BID)
     Dates: start: 20241005, end: 20241011
  6. FINTEPLA [Suspect]
     Active Substance: FENFLURAMINE
     Dosage: 6.6 MILLIGRAM, 2X/DAY (BID)
  7. LIORESAL [Suspect]
     Active Substance: BACLOFEN
     Indication: Muscle spasticity
     Dosage: LONG TERM TREATMENT.
     Route: 048
  8. CANNABIDIOL [Concomitant]
     Active Substance: CANNABIDIOL
     Indication: Epilepsy
     Route: 048
  9. CLOBAZAM [Concomitant]
     Active Substance: CLOBAZAM
     Indication: Epilepsy
     Dosage: LONG TERM TREATMENT.
     Route: 048
  10. LAMOTRIGINE [Concomitant]
     Active Substance: LAMOTRIGINE
     Indication: Product used for unknown indication

REACTIONS (2)
  - Urinary retention [Recovered/Resolved]
  - Somnolence [Unknown]

NARRATIVE: CASE EVENT DATE: 20241105
